FAERS Safety Report 12977103 (Version 1)
Quarter: 2016Q4

REPORT INFORMATION
  Report Type: Spontaneous
  Country: US (occurrence: US)
  Receive Date: 20161128
  Receipt Date: 20161128
  Transmission Date: 20170207
  Serious: Yes (Other)
  Sender: FDA-Public Use
  Company Number: US-ROCHE-1857614

PATIENT
  Sex: Female

DRUGS (21)
  1. THYROXIN [Concomitant]
     Active Substance: LEVOTHYROXINE
     Route: 048
     Dates: start: 20150723
  2. HERCEPTIN [Suspect]
     Active Substance: TRASTUZUMAB
     Indication: HER-2 POSITIVE BREAST CANCER
     Route: 065
     Dates: start: 2006, end: 2007
  3. TAXOTERE [Suspect]
     Active Substance: DOCETAXEL
     Indication: HER-2 POSITIVE BREAST CANCER
     Route: 065
     Dates: start: 20070514, end: 20070702
  4. WHEY PROTEIN [Concomitant]
     Route: 065
     Dates: start: 20160520
  5. MELATONIN [Concomitant]
     Active Substance: MELATONIN
     Dosage: AT BEDTIME
     Route: 048
     Dates: start: 20140130
  6. LEVOTHYROXINE. [Concomitant]
     Active Substance: LEVOTHYROXINE
     Dosage: ON AN EMPTY STOMACH
     Route: 065
     Dates: start: 20160603
  7. TAMOXIFEN [Concomitant]
     Active Substance: TAMOXIFEN
  8. VITAMIN D3 [Concomitant]
     Active Substance: CHOLECALCIFEROL
     Route: 065
     Dates: start: 20150604
  9. IBRANCE [Concomitant]
     Active Substance: PALBOCICLIB
     Dosage: FOR 21 DAY, 7 DAYS OFF REPEAT
     Route: 048
     Dates: start: 20160520
  10. BIOTIN [Concomitant]
     Active Substance: BIOTIN
     Route: 065
     Dates: start: 20131209
  11. AMBIEN [Concomitant]
     Active Substance: ZOLPIDEM TARTRATE
     Dosage: AT BEDTIME
     Route: 048
     Dates: start: 20160520
  12. CARNITINE [Concomitant]
     Active Substance: CARNITINE
     Route: 048
  13. LAPATINIB [Suspect]
     Active Substance: LAPATINIB
     Indication: HER-2 POSITIVE BREAST CANCER
     Route: 065
     Dates: end: 201207
  14. ZOLADEX [Concomitant]
     Active Substance: GOSERELIN ACETATE
  15. FISH OIL [Concomitant]
     Active Substance: FISH OIL
     Route: 048
  16. ESCITALOPRAM [Concomitant]
     Active Substance: ESCITALOPRAM OXALATE
     Route: 048
     Dates: start: 20160320
  17. ARIMIDEX [Concomitant]
     Active Substance: ANASTROZOLE
  18. KADCYLA [Suspect]
     Active Substance: ADO-TRASTUZUMAB EMTANSINE
     Indication: HER-2 POSITIVE BREAST CANCER
     Route: 065
     Dates: start: 20130627, end: 20131031
  19. PERJETA [Suspect]
     Active Substance: PERTUZUMAB
     Indication: HER-2 POSITIVE BREAST CANCER
     Route: 065
  20. FEMARA [Concomitant]
     Active Substance: LETROZOLE
  21. XELODA [Suspect]
     Active Substance: CAPECITABINE
     Indication: HER-2 POSITIVE BREAST CANCER
     Route: 065

REACTIONS (3)
  - Hepatic steatosis [Unknown]
  - Diarrhoea [Unknown]
  - Constipation [Unknown]
